FAERS Safety Report 5479108-8 (Version None)
Quarter: 2007Q4

REPORT INFORMATION
  Report Type: 
  Country: None (occurrence: None)
  Receive Date: 20071006
  Receipt Date: 20070927
  Transmission Date: 20080405
  Serious: Yes (Other)
  Sender: FDA-Public Use
  Company Number: JP-PFIZER INC-2007081718

PATIENT
  Age: 74 Year
  Sex: Female

DRUGS (5)
  1. DETRUSITOL SR [Suspect]
     Dosage: DAILY DOSE:4MG
     Route: 048
     Dates: start: 20070705, end: 20070901
  2. NORVASC [Concomitant]
     Route: 048
  3. MIROBECT [Concomitant]
     Route: 048
  4. HERBAL PREPARATION [Concomitant]
     Route: 048
  5. ALFACALCIDOL [Concomitant]
     Route: 048

REACTIONS (1)
  - ALOPECIA [None]
